FAERS Safety Report 9067721 (Version 1)
Quarter: 2013Q1

REPORT INFORMATION
  Report Type: Spontaneous
  Country: FR (occurrence: FR)
  Receive Date: 20130128
  Receipt Date: 20130128
  Transmission Date: 20140127
  Serious: Yes (Other)
  Sender: FDA-Public Use
  Company Number: FR-ROCHE-1184046

PATIENT
  Sex: 0

DRUGS (4)
  1. AVASTIN [Suspect]
     Indication: COLON CANCER METASTATIC
     Route: 065
  2. FOLINIC ACID [Concomitant]
     Indication: COLON CANCER METASTATIC
     Route: 065
  3. 5-FLUOROURACIL [Concomitant]
     Indication: COLON CANCER METASTATIC
     Route: 065
  4. OXALIPLATIN [Concomitant]
     Indication: COLON CANCER METASTATIC
     Route: 065

REACTIONS (1)
  - Gastrointestinal fistula [Unknown]
